FAERS Safety Report 9350971 (Version 1)
Quarter: 2013Q2

REPORT INFORMATION
  Report Type: Spontaneous
  Country: JP (occurrence: JP)
  Receive Date: 20130617
  Receipt Date: 20130617
  Transmission Date: 20140414
  Serious: Yes (Hospitalization)
  Sender: FDA-Public Use
  Company Number: JP-PERRIGO-13JP006297

PATIENT
  Age: 33 Year
  Sex: Male

DRUGS (3)
  1. RANITIDINE HYDROCHLORIDE [Suspect]
     Indication: CROHN^S DISEASE
     Dosage: UNK
     Route: 065
     Dates: start: 2001, end: 2011
  2. MESALAMINE RX 66.667 MG/ML 2N9 [Suspect]
     Indication: CROHN^S DISEASE
     Dosage: UNK
     Route: 065
     Dates: start: 2001, end: 2011
  3. INFLIXIMAB [Concomitant]
     Indication: CROHN^S DISEASE
     Dosage: UNK
     Route: 065
     Dates: start: 2007

REACTIONS (2)
  - Tubulointerstitial nephritis [Recovered/Resolved]
  - Renal failure [None]
